FAERS Safety Report 9203178 (Version 2)
Quarter: 2013Q2

REPORT INFORMATION
  Report Type: Spontaneous
  Country: GB (occurrence: None)
  Receive Date: 20130329
  Receipt Date: 20130411
  Transmission Date: 20140414
  Serious: Yes (Death, Hospitalization)
  Sender: FDA-Public Use
  Company Number: AUR-APL-2013-02516

PATIENT
  Age: 5 Decade
  Sex: Female

DRUGS (2)
  1. CITALOPRAM (CITALOPRAM) [Suspect]
     Indication: DEPRESSION
     Route: 048
     Dates: start: 2012, end: 2012
  2. EPILIM (VALPROATE SODIUM) [Concomitant]

REACTIONS (3)
  - Cerebral haemorrhage [None]
  - Syncope [None]
  - Drug ineffective [None]
